FAERS Safety Report 16541292 (Version 2)
Quarter: 2019Q3

REPORT INFORMATION
  Report Type: Spontaneous
  Country: GB (occurrence: GB)
  Receive Date: 20190708
  Receipt Date: 20190716
  Transmission Date: 20191004
  Serious: Yes (Hospitalization, Other)
  Sender: FDA-Public Use
  Company Number: GB-PFIZER INC-2019282654

PATIENT
  Age: 12 Year
  Sex: Female

DRUGS (11)
  1. KETAMINE HCL [Suspect]
     Active Substance: KETAMINE HYDROCHLORIDE
     Dosage: 40 LG/KG (1 ML) AND A LOCKOUT PERIOD OF 30 MIN
     Route: 040
  2. MORPHINE [Suspect]
     Active Substance: MORPHINE
     Indication: PAIN
     Dosage: UNK
     Route: 042
  3. KETAMINE HCL [Suspect]
     Active Substance: KETAMINE HYDROCHLORIDE
     Dosage: GRADUALLY INCREASED TO 40 LG/KG /H
     Route: 051
  4. PARACETAMOL [Suspect]
     Active Substance: ACETAMINOPHEN
     Indication: PAIN
     Dosage: UNK
     Route: 065
  5. KETAMINE HCL [Suspect]
     Active Substance: KETAMINE HYDROCHLORIDE
     Dosage: BACKGROUND INFUSION WAS GRADUALLY DECREASED TO 4 LG/KG AND THE LOCKOUT PERIOD EXTENDED TO 15 MIN
     Route: 051
  6. KETAMINE HCL [Suspect]
     Active Substance: KETAMINE HYDROCHLORIDE
     Indication: ABDOMINAL PAIN
     Dosage: 20 LG/KG (0.5 INFUSION WAS THEN INCREASED TO 28 LG/KG (0.7 ML/H)
     Route: 051
  7. KETAMINE HCL [Suspect]
     Active Substance: KETAMINE HYDROCHLORIDE
     Dosage: THE BACKGROUND INFUSION WAS INCREASED AGAIN TO 40 LG/KG EH AND THE LOCKOUT
     Route: 051
  8. KETAMINE HCL [Suspect]
     Active Substance: KETAMINE HYDROCHLORIDE
     Dosage: 20 LG/KG)1/H)1 (0.5 ML/H)1)
     Route: 051
  9. PARACETAMOL [Suspect]
     Active Substance: ACETAMINOPHEN
     Indication: PAIN
     Dosage: 65 MG/ KG /DAY
     Route: 042
  10. KETAMINE HCL [Suspect]
     Active Substance: KETAMINE HYDROCHLORIDE
     Dosage: 20 LG/KG (0.5 ML/H 1  WITH A PCA BOLUS OF 40 LG/KG (1 ML), LOCKOUT PERIOD 20 MIN
     Route: 051
  11. PARACETAMOL [Suspect]
     Active Substance: ACETAMINOPHEN
     Dosage: 50 MG/KG /DAY
     Route: 042

REACTIONS (8)
  - Pallor [Unknown]
  - Lethargy [Unknown]
  - Colitis ulcerative [Unknown]
  - Drug ineffective [Not Recovered/Not Resolved]
  - Malaise [Unknown]
  - Rectal haemorrhage [Unknown]
  - Condition aggravated [Unknown]
  - Megacolon [Unknown]
